FAERS Safety Report 19434090 (Version 1)
Quarter: 2021Q2

REPORT INFORMATION
  Report Type: Spontaneous
  Country: US (occurrence: US)
  Receive Date: 20210617
  Receipt Date: 20210617
  Transmission Date: 20210717
  Serious: No
  Sender: FDA-Public Use
  Company Number: US-ASTRAZENECA-2021A482688

PATIENT
  Sex: Female
  Weight: 71.2 kg

DRUGS (1)
  1. BEVESPI AEROSPHERE [Suspect]
     Active Substance: FORMOTEROL FUMARATE\GLYCOPYRROLATE
     Indication: CHRONIC OBSTRUCTIVE PULMONARY DISEASE
     Dosage: 9MCG/4.8 MCG., 2 PUFFS TWICE A DAY
     Route: 055
     Dates: start: 20210520

REACTIONS (6)
  - Insomnia [Not Recovered/Not Resolved]
  - Device malfunction [Unknown]
  - Incorrect dose administered [Not Recovered/Not Resolved]
  - Muscle spasms [Not Recovered/Not Resolved]
  - Anger [Not Recovered/Not Resolved]
  - Mood swings [Not Recovered/Not Resolved]
